FAERS Safety Report 16829945 (Version 1)
Quarter: 2019Q3

REPORT INFORMATION
  Report Type: Report from Study
  Country: US (occurrence: US)
  Receive Date: 20190919
  Receipt Date: 20190919
  Transmission Date: 20191005
  Serious: Yes (Hospitalization)
  Sender: FDA-Public Use
  Company Number: US-ACTELION-A-NJ2019-195864

PATIENT
  Age: 58 Year
  Sex: Female

DRUGS (1)
  1. OPSUMIT [Suspect]
     Active Substance: MACITENTAN
     Indication: HYPERTENSION
     Route: 048

REACTIONS (5)
  - Disturbance in attention [Not Recovered/Not Resolved]
  - Fall [Recovered/Resolved]
  - Feeling abnormal [Not Recovered/Not Resolved]
  - Hip fracture [Not Recovered/Not Resolved]
  - Pain [Not Recovered/Not Resolved]

NARRATIVE: CASE EVENT DATE: 20190830
